FAERS Safety Report 25115017 (Version 1)
Quarter: 2025Q1

REPORT INFORMATION
  Report Type: Spontaneous
  Country: US (occurrence: US)
  Receive Date: 20250324
  Receipt Date: 20250324
  Transmission Date: 20250409
  Serious: No
  Sender: NX DEVELOPMENT CORPORATION
  Company Number: US-NXDC-2025GLE00014

PATIENT
  Sex: Male

DRUGS (1)
  1. GLEOLAN [Suspect]
     Active Substance: AMINOLEVULINIC ACID HYDROCHLORIDE
     Indication: Photodynamic diagnostic procedure

REACTIONS (1)
  - Visual impairment [Unknown]
